FAERS Safety Report 18319823 (Version 2)
Quarter: 2020Q4

REPORT INFORMATION
  Report Type: Spontaneous
  Country: GB (occurrence: GB)
  Receive Date: 20200929
  Receipt Date: 20201006
  Transmission Date: 20210113
  Serious: Yes (Death)
  Sender: FDA-Public Use
  Company Number: GB-MDD US OPERATIONS-E2B_00003509

PATIENT
  Age: 82 Year
  Sex: Female
  Weight: 57 kg

DRUGS (17)
  1. LACIDIPINE [Concomitant]
     Active Substance: LACIDIPINE
     Dates: start: 20191022
  2. AMANTADINE HYDROCHLORIDE. [Concomitant]
     Active Substance: AMANTADINE HYDROCHLORIDE
     Dates: start: 20191022
  3. FOSTAIR [Concomitant]
     Active Substance: BECLOMETHASONE\FORMOTEROL
     Indication: ASTHMA
     Route: 055
     Dates: start: 20200324
  4. MACROGOL [Concomitant]
     Active Substance: POLYETHYLENE GLYCOLS
     Dosage: NOT PROVIDED
     Dates: start: 20190501
  5. PREGABALIN. [Concomitant]
     Active Substance: PREGABALIN
     Dates: start: 20200728
  6. MICONAZOLE. [Concomitant]
     Active Substance: MICONAZOLE
     Dosage: NOT PROVIDED
     Dates: start: 20200619, end: 20200624
  7. MIRTAZAPINE. [Concomitant]
     Active Substance: MIRTAZAPINE
     Dates: start: 20191022
  8. SINEMET CR [Concomitant]
     Active Substance: CARBIDOPA\LEVODOPA
     Dates: start: 20191022
  9. DOXYCYCLINE. [Concomitant]
     Active Substance: DOXYCYCLINE
     Dosage: NOT PROVIDED
     Dates: start: 20200626, end: 20200703
  10. FUROSEMIDE. [Concomitant]
     Active Substance: FUROSEMIDE
     Dates: start: 20191022
  11. CIRCADIN [Concomitant]
     Active Substance: MELATONIN
     Dates: start: 20200623
  12. SINEMET [Concomitant]
     Active Substance: CARBIDOPA\LEVODOPA
     Dates: start: 20191022
  13. RATIOPHARM GMBH SPIROCO PROLONGED RELEASE [Concomitant]
     Dates: start: 20191022
  14. SAFINAMIDE [Suspect]
     Active Substance: SAFINAMIDE
     Indication: PARKINSON^S DISEASE
     Route: 048
     Dates: start: 20191022, end: 20200806
  15. FERROUS FUMARATE [Concomitant]
     Active Substance: FERROUS FUMARATE
     Dates: start: 20190111
  16. SALBUTAMOL [Concomitant]
     Active Substance: ALBUTEROL
     Dates: start: 20200218
  17. DERMOL [Concomitant]
     Active Substance: BENZALKONIUM CHLORIDE\CHLORHEXIDINE HYDROCHLORIDE\ISOPROPYL MYRISTATE\PARAFFIN
     Dosage: NOT PROVIDED
     Dates: start: 20191022

REACTIONS (1)
  - Parkinson^s disease [Fatal]

NARRATIVE: CASE EVENT DATE: 20200727
